FAERS Safety Report 7408540-8 (Version None)
Quarter: 2011Q2

REPORT INFORMATION
  Report Type: 
  Country: None (occurrence: None)
  Receive Date: 20110412
  Receipt Date: 20110407
  Transmission Date: 20111010
  Serious: Yes (Other)
  Sender: FDA-Public Use
  Company Number: IT-PFIZER INC-2011072987

PATIENT
  Age: 30 Year
  Sex: Male

DRUGS (15)
  1. LAMIVUDINE [Suspect]
     Indication: HIV INFECTION
     Dosage: UNK
     Dates: start: 19950801, end: 19960201
  2. ZIDOVUDINE [Suspect]
     Indication: HIV INFECTION
     Dosage: UNK
     Dates: start: 19950801, end: 19960201
  3. ZIDOVUDINE [Suspect]
     Dosage: UNK
     Dates: start: 19990501, end: 20000101
  4. LAMIVUDINE [Suspect]
     Dosage: UNK
     Dates: start: 19960301, end: 19980401
  5. LAMIVUDINE [Suspect]
     Dosage: UNK
     Dates: start: 20000201, end: 20000901
  6. EFAVIRENZ [Suspect]
     Indication: HIV INFECTION
     Dosage: UNK
     Dates: start: 19980501, end: 19990401
  7. INDINAVIR/RITONAVIR [Suspect]
     Indication: HIV INFECTION
     Dosage: UNK
     Dates: start: 19990501, end: 20000101
  8. NELFINAVIR MESILATE [Suspect]
     Indication: HIV INFECTION
     Dosage: UNK
     Dates: start: 19980501, end: 19990401
  9. ABACAVIR [Suspect]
     Indication: HIV INFECTION
     Dosage: UNK
     Dates: start: 19990501, end: 20000101
  10. ZIDOVUDINE [Suspect]
     Dosage: UNK
     Dates: start: 19960301, end: 19980401
  11. ZIDOVUDINE [Suspect]
     Dosage: UNK
     Dates: start: 20000201, end: 20000901
  12. LAMIVUDINE [Suspect]
     Dosage: UNK
     Dates: start: 19990501, end: 20000101
  13. STAVUDINE [Suspect]
     Indication: HIV INFECTION
     Dosage: UNK
     Dates: start: 19980501, end: 19990401
  14. SAQUINAVIR [Suspect]
     Indication: HIV INFECTION
     Dosage: UNK
     Dates: start: 19950801, end: 19960201
  15. INDINAVIR [Suspect]
     Indication: HIV INFECTION
     Dosage: UNK
     Dates: start: 19960301, end: 19980401

REACTIONS (6)
  - PRURITUS [None]
  - DERMATITIS ALLERGIC [None]
  - NEPHROLITHIASIS [None]
  - MENTAL DISORDER [None]
  - DIARRHOEA [None]
  - VIROLOGIC FAILURE [None]
